FAERS Safety Report 10137593 (Version 1)
Quarter: 2014Q2

REPORT INFORMATION
  Report Type: Spontaneous
  Country: US (occurrence: None)
  Receive Date: 20140428
  Receipt Date: 20140428
  Transmission Date: 20141212
  Serious: No
  Sender: FDA-Public Use
  Company Number: None

PATIENT
  Age: 70 Year
  Sex: Female
  Weight: 88.45 kg

DRUGS (1)
  1. MIRVASO 0.33% [Suspect]
     Indication: VASCULAR RUPTURE
     Dosage: APPLY PEA SIZE DROP, ONCE DAILY, APPLIED TO A SURGACE, USUALLY THE SKIN
     Dates: start: 20140421, end: 20140424

REACTIONS (4)
  - Flushing [None]
  - Erythema [None]
  - Pruritus [None]
  - Burning sensation [None]
